FAERS Safety Report 10081684 (Version 1)
Quarter: 2014Q2

REPORT INFORMATION
  Report Type: Spontaneous
  Country: US (occurrence: None)
  Receive Date: 20140407
  Receipt Date: 20140407
  Transmission Date: 20141212
  Serious: Yes (Other)
  Sender: FDA-Public Use
  Company Number: ABR_01560_2014

PATIENT
  Sex: 0

DRUGS (1)
  1. EDARBYCLOR [Suspect]
     Indication: PRODUCT USED FOR UNKNOWN INDICATION
     Dosage: (DF [140/12.52 MG])

REACTIONS (1)
  - Hyponatraemia [None]
